FAERS Safety Report 19373152 (Version 2)
Quarter: 2021Q2

REPORT INFORMATION
  Report Type: Spontaneous
  Country: US (occurrence: US)
  Receive Date: 20210604
  Receipt Date: 20210624
  Transmission Date: 20210717
  Serious: No
  Sender: FDA-Public Use
  Company Number: US-LUPIN PHARMACEUTICALS INC.-2021-08278

PATIENT
  Age: 23 Year
  Sex: Female

DRUGS (4)
  1. DORIPENEM. [Suspect]
     Active Substance: DORIPENEM
     Indication: PANTOEA AGGLOMERANS INFECTION
     Dosage: 500 MILLIGRAM, TID (FOR THREE DOSES)
     Route: 065
  2. CEFTRIAXONE. [Suspect]
     Active Substance: CEFTRIAXONE
     Indication: ANTIBIOTIC THERAPY
     Dosage: 2 GRAM, QD
     Route: 042
  3. CEFTRIAXONE. [Suspect]
     Active Substance: CEFTRIAXONE
     Indication: PANTOEA AGGLOMERANS INFECTION
  4. TOBRAMYCIN. [Suspect]
     Active Substance: TOBRAMYCIN
     Indication: ANTIBIOTIC THERAPY
     Dosage: 360 MILLIGRAM
     Route: 065

REACTIONS (1)
  - Maternal exposure during pregnancy [Unknown]
